FAERS Safety Report 15625476 (Version 1)
Quarter: 2018Q4

REPORT INFORMATION
  Report Type: Report from Study
  Country: DE (occurrence: DE)
  Receive Date: 20181116
  Receipt Date: 20181116
  Transmission Date: 20190205
  Serious: Yes (Other)
  Sender: FDA-Public Use
  Company Number: DE-ROCHE-2212264

PATIENT

DRUGS (1)
  1. RITUXIMAB. [Suspect]
     Active Substance: RITUXIMAB
     Indication: MULTIPLE SCLEROSIS
     Route: 065

REACTIONS (6)
  - Intentional product use issue [Unknown]
  - Eye pain [Unknown]
  - Visual impairment [Unknown]
  - Hypoaesthesia [Unknown]
  - Off label use [Unknown]
  - Paraesthesia [Unknown]
